FAERS Safety Report 5474072-X (Version None)
Quarter: 2007Q4

REPORT INFORMATION
  Report Type: 
  Country: None (occurrence: None)
  Receive Date: 20071002
  Receipt Date: 20070920
  Transmission Date: 20080405
  Serious: Yes (Hospitalization, Other)
  Sender: FDA-Public Use
  Company Number: PHBS2007JP13373

PATIENT
  Age: 35 Year
  Sex: Female

DRUGS (2)
  1. RITALIN [Suspect]
     Indication: SUICIDE ATTEMPT
     Dosage: 1000 MG, ONCE/SINGLE
     Route: 048
  2. ACETAMINOPHEN [Suspect]
     Indication: SUICIDE ATTEMPT
     Dosage: 180 DF, ONCE/SINGLE
     Route: 048

REACTIONS (3)
  - NAUSEA [None]
  - OVERDOSE [None]
  - SUICIDE ATTEMPT [None]
